FAERS Safety Report 14707849 (Version 1)
Quarter: 2018Q2

REPORT INFORMATION
  Report Type: Spontaneous
  Country: SE (occurrence: SE)
  Receive Date: 20180403
  Receipt Date: 20180403
  Transmission Date: 20180711
  Serious: Yes (Other)
  Sender: FDA-Public Use
  Company Number: PHHY2017SE202067

PATIENT
  Age: 64 Year
  Sex: Male

DRUGS (9)
  1. QUETIAPINE. [Suspect]
     Active Substance: QUETIAPINE
     Indication: PRODUCT USED FOR UNKNOWN INDICATION
     Dosage: 25 MG, UNK
     Route: 065
  2. ALFUZOSIN [Concomitant]
     Active Substance: ALFUZOSIN
     Indication: MICTURITION URGENCY
     Dosage: UNSPECIFIED
     Route: 065
  3. LITHIONIT [Suspect]
     Active Substance: LITHIUM SULFATE
     Indication: BIPOLAR II DISORDER
     Dosage: 42 MG, UNK (CURRENT DOSING 2+2 OR 3 TABLETS)
     Route: 065
  4. CITALOPRAM [Concomitant]
     Active Substance: CITALOPRAM HYDROBROMIDE
     Indication: DEPRESSIVE SYMPTOM
     Dosage: 10 MG, QD (1 TABLET IN THE MORNING)
     Route: 065
     Dates: start: 201111
  5. TOLTERODINE [Concomitant]
     Active Substance: TOLTERODINE
     Indication: MICTURITION URGENCY
     Dosage: UNSPECIFIED
     Route: 065
  6. MAGNESIUM [Concomitant]
     Active Substance: MAGNESIUM
     Indication: ADVERSE REACTION
     Dosage: UNSPECIFIED
     Route: 065
  7. ESOMEPRAZOLE [Concomitant]
     Active Substance: ESOMEPRAZOLE
     Indication: GASTROOESOPHAGEAL SPHINCTER INSUFFICIENCY
     Dosage: UNSPECIFIED
     Route: 065
  8. LAMOTRIGINE. [Concomitant]
     Active Substance: LAMOTRIGINE
     Indication: PRODUCT USED FOR UNKNOWN INDICATION
     Dosage: 75 MG, QW
     Route: 065
     Dates: start: 20110915, end: 20111105
  9. SYMBICORT [Concomitant]
     Active Substance: BUDESONIDE\FORMOTEROL FUMARATE DIHYDRATE
     Indication: ASTHMA
     Dosage: UNSPECIFIED
     Route: 065

REACTIONS (3)
  - Dry mouth [Not Recovered/Not Resolved]
  - Parkinsonism [Unknown]
  - Thirst [Not Recovered/Not Resolved]
